FAERS Safety Report 12469086 (Version 4)
Quarter: 2021Q2

REPORT INFORMATION
  Report Type: Spontaneous
  Country: US (occurrence: US)
  Receive Date: 20160615
  Receipt Date: 20210622
  Transmission Date: 20210716
  Serious: Yes (Other)
  Sender: FDA-Public Use
  Company Number: US-PFIZER INC-2016296824

PATIENT
  Age: 36 Year
  Sex: Male
  Weight: 78 kg

DRUGS (3)
  1. ZOLOFT [Suspect]
     Active Substance: SERTRALINE HYDROCHLORIDE
     Indication: SOCIAL ANXIETY DISORDER
     Dosage: 10 MG, 1X/DAY
     Route: 048
     Dates: start: 1995, end: 1995
  2. ZOLOFT [Suspect]
     Active Substance: SERTRALINE HYDROCHLORIDE
     Indication: CONFUSIONAL STATE
  3. SALAZINE [Concomitant]
     Active Substance: SULFASALAZINE
     Indication: EMOTIONAL DISORDER
     Dosage: 5 MG, UNK
     Dates: start: 19820901

REACTIONS (2)
  - Suicide attempt [Recovered/Resolved]
  - Product prescribing error [Unknown]

NARRATIVE: CASE EVENT DATE: 1995
